FAERS Safety Report 15221709 (Version 1)
Quarter: 2018Q3

REPORT INFORMATION
  Report Type: Spontaneous
  Country: ES (occurrence: ES)
  Receive Date: 20180731
  Receipt Date: 20180731
  Transmission Date: 20181010
  Serious: Yes (Hospitalization, Other)
  Sender: FDA-Public Use
  Company Number: ES-SA-2018SA205188

PATIENT
  Age: 68 Year
  Sex: Female
  Weight: 79 kg

DRUGS (2)
  1. TOUJEO [Concomitant]
     Active Substance: INSULIN GLARGINE
     Indication: TYPE 2 DIABETES MELLITUS
     Dosage: 34 IU, QD
     Route: 058
  2. LANTUS [Suspect]
     Active Substance: INSULIN GLARGINE
     Dosage: 32 IU, QID
     Route: 058

REACTIONS (2)
  - Cerebrovascular accident [Recovered/Resolved]
  - Fatigue [Not Recovered/Not Resolved]

NARRATIVE: CASE EVENT DATE: 20180228
